FAERS Safety Report 22364812 (Version 1)
Quarter: 2023Q2

REPORT INFORMATION
  Report Type: Spontaneous
  Country: US (occurrence: US)
  Receive Date: 20230525
  Receipt Date: 20230525
  Transmission Date: 20230722
  Serious: Yes (Hospitalization)
  Sender: FDA-Public Use
  Company Number: US-AUROBINDO-AUR-APL-2023-037514

PATIENT
  Age: 57 Year
  Sex: Male

DRUGS (1)
  1. ACETAMINOPHEN [Suspect]
     Active Substance: ACETAMINOPHEN
     Indication: Product used for unknown indication
     Dosage: 31.3 GRAM, DAILY(IN THE 4 WEEKS BEFORE PRESENTATION)
     Route: 048

REACTIONS (2)
  - Metabolic acidosis [Recovered/Resolved]
  - Overdose [Recovered/Resolved]
